FAERS Safety Report 8376312-6 (Version None)
Quarter: 2012Q2

REPORT INFORMATION
  Report Type: 
  Country: None (occurrence: None)
  Receive Date: 20120522
  Receipt Date: 20120515
  Transmission Date: 20120825
  Serious: Yes (Other)
  Sender: FDA-Public Use
  Company Number: US-PURDUE-USA-2012-0082158

PATIENT
  Age: 50 Year
  Sex: Male
  Weight: 81 kg

DRUGS (7)
  1. OXYCONTIN [Suspect]
     Indication: BACK PAIN
     Dosage: UNK UNK, SEE TEXT
  2. DEPAKOTE ER [Concomitant]
     Indication: MOOD SWINGS
     Dosage: 250 MG, BID
     Route: 048
  3. OXYCODONE HCL [Suspect]
     Indication: INTERVERTEBRAL DISC DEGENERATION
  4. ROXICODONE [Suspect]
     Indication: INTERVERTEBRAL DISC DEGENERATION
     Dosage: UNK UNK, SEE TEXT
  5. OXYCONTIN [Suspect]
     Indication: INTERVERTEBRAL DISC DEGENERATION
  6. SOMA [Suspect]
     Indication: INTERVERTEBRAL DISC DEGENERATION
  7. LEXAPRO [Concomitant]
     Indication: DEPRESSION
     Dosage: 20 MG, QD PRN
     Route: 048

REACTIONS (17)
  - SURGERY [None]
  - WEIGHT DECREASED [None]
  - HALLUCINATION, AUDITORY [None]
  - DRUG DEPENDENCE [None]
  - DRUG WITHDRAWAL SYNDROME [None]
  - SELF INJURIOUS BEHAVIOUR [None]
  - AGGRESSION [None]
  - PAIN [None]
  - TREMOR [None]
  - EYE IRRITATION [None]
  - TERMINAL INSOMNIA [None]
  - COLD SWEAT [None]
  - FATIGUE [None]
  - UNEVALUABLE EVENT [None]
  - SUBSTANCE ABUSE [None]
  - MAJOR DEPRESSION [None]
  - PARANOIA [None]
